FAERS Safety Report 12828317 (Version 1)
Quarter: 2016Q4

REPORT INFORMATION
  Report Type: Spontaneous
  Country: US (occurrence: US)
  Receive Date: 20161007
  Receipt Date: 20161007
  Transmission Date: 20170207
  Serious: Yes (Life-Threatening, Hospitalization, Other)
  Sender: FDA-Public Use
  Company Number: US-BRISTOL-MYERS SQUIBB COMPANY-BMS-2016-081287

PATIENT
  Age: 58 Year
  Sex: Female

DRUGS (4)
  1. OPDIVO [Suspect]
     Active Substance: NIVOLUMAB
     Dosage: UNK
     Route: 065
     Dates: start: 20160816
  2. OPDIVO [Suspect]
     Active Substance: NIVOLUMAB
     Indication: OVARIAN CANCER
     Dosage: UNK
     Route: 065
     Dates: start: 20160726
  3. YERVOY [Suspect]
     Active Substance: IPILIMUMAB
     Indication: OVARIAN CANCER
     Dosage: UNK
     Route: 065
     Dates: start: 20160726
  4. YERVOY [Suspect]
     Active Substance: IPILIMUMAB
     Dosage: UNK
     Route: 065
     Dates: start: 20160816

REACTIONS (8)
  - Asthenia [Unknown]
  - Visual impairment [Unknown]
  - Product use issue [Unknown]
  - Type 1 diabetes mellitus [Unknown]
  - Diarrhoea [Unknown]
  - Diabetic ketoacidosis [Unknown]
  - Vomiting [Unknown]
  - Hypothyroidism [Unknown]

NARRATIVE: CASE EVENT DATE: 201609
